FAERS Safety Report 8922022 (Version 1)
Quarter: 2012Q4

REPORT INFORMATION
  Report Type: Spontaneous
  Country: US (occurrence: None)
  Receive Date: 20121120
  Receipt Date: 20121120
  Transmission Date: 20130627
  Serious: No
  Sender: FDA-Public Use
  Company Number: None

PATIENT
  Age: 41 Year
  Sex: Male
  Weight: 83.46 kg

DRUGS (1)
  1. SEROQUEL XR [Suspect]
     Indication: SCHIZOAFFECTIVE DISORDER
     Dosage: 1 tablet 3 hrs before bed po
     Route: 048

REACTIONS (1)
  - Headache [None]
